FAERS Safety Report 22306360 (Version 2)
Quarter: 2023Q4

REPORT INFORMATION
  Report Type: Spontaneous
  Country: US (occurrence: US)
  Receive Date: 20230511
  Receipt Date: 20231003
  Transmission Date: 20240110
  Serious: Yes (Hospitalization)
  Sender: FDA-Public Use
  Company Number: US-BRISTOL-MYERS SQUIBB COMPANY-2023-064440

PATIENT
  Age: 72 Year
  Sex: Male

DRUGS (1)
  1. POMALYST [Suspect]
     Active Substance: POMALIDOMIDE
     Indication: Plasma cell myeloma
     Dosage: FREQ: TAKE 1 CAPSULE (3 MG TOTAL) BY MOUTH ONCE DAILY FOR 21 DAYS, FOLLOWED BY 7 DAYS OFF
     Route: 048

REACTIONS (2)
  - Infection [Unknown]
  - Cardiac disorder [Unknown]
